FAERS Safety Report 5346195-7 (Version None)
Quarter: 2007Q2

REPORT INFORMATION
  Report Type: 
  Country: None (occurrence: None)
  Receive Date: 20070605
  Receipt Date: 20070524
  Transmission Date: 20071010
  Serious: Yes (Death)
  Sender: FDA-Public Use
  Company Number: JP-SANOFI-SYNTHELABO-A01200705287

PATIENT
  Sex: Male
  Weight: 44 kg

DRUGS (5)
  1. KYTRIL [Concomitant]
     Indication: PREMEDICATION
     Route: 041
     Dates: start: 20070507, end: 20070507
  2. FLUOROURACIL [Suspect]
     Indication: COLON CANCER
     Dosage: 500MG/BODY IN BOLUS THEN 3250MG/BODY AS CONTINUOUS INFUSION ON DAY 1-2
     Route: 041
     Dates: start: 20070507, end: 20070508
  3. ISOVORIN [Suspect]
     Indication: COLON CANCER
     Route: 041
     Dates: start: 20070507, end: 20070508
  4. DECADRON [Concomitant]
     Indication: PREMEDICATION
     Route: 041
     Dates: start: 20070507, end: 20070507
  5. OXALIPLATIN [Suspect]
     Indication: COLON CANCER
     Route: 041
     Dates: start: 20070507, end: 20070507

REACTIONS (2)
  - ILEUS [None]
  - SHOCK [None]
